FAERS Safety Report 4417630-3 (Version None)
Quarter: 2004Q3

REPORT INFORMATION
  Report Type: 
  Country: None (occurrence: None)
  Receive Date: 20040803
  Receipt Date: 20040722
  Transmission Date: 20050211
  Serious: Yes (Hospitalization)
  Sender: FDA-Public Use
  Company Number: 238288

PATIENT
  Age: 55 Year
  Sex: Female

DRUGS (2)
  1. NOVORAPID CHU (INSULIN ASPART) SOLUTION FOR INJECTION, 100U/ML [Suspect]
     Indication: INSULIN-REQUIRING TYPE II DIABETES MELLITUS
     Dosage: SUBCUTANEOUS
     Route: 058
     Dates: start: 20040501
  2. LANTUS [Concomitant]

REACTIONS (1)
  - HEPATIC FUNCTION ABNORMAL [None]
